FAERS Safety Report 17292316 (Version 1)
Quarter: 2020Q1

REPORT INFORMATION
  Report Type: Spontaneous
  Country: US (occurrence: US)
  Receive Date: 20200121
  Receipt Date: 20200121
  Transmission Date: 20200409
  Serious: Yes (Other)
  Sender: FDA-Public Use
  Company Number: US-BAYER-2019-227981

PATIENT
  Age: 32 Year
  Sex: Female

DRUGS (1)
  1. SKYLA [Suspect]
     Active Substance: LEVONORGESTREL
     Indication: CONTRACEPTION
     Dosage: 14 MCG/24HR, CONT
     Route: 015
     Dates: start: 201603, end: 2019

REACTIONS (7)
  - Oophoritis [None]
  - Device use issue [None]
  - Device expulsion [None]
  - Abdominal pain lower [Recovered/Resolved]
  - Dyspareunia [None]
  - Ovarian cyst ruptured [Recovered/Resolved]
  - Abdominal discomfort [None]

NARRATIVE: CASE EVENT DATE: 20191213
